FAERS Safety Report 7657922-8 (Version None)
Quarter: 2011Q3

REPORT INFORMATION
  Report Type: 
  Country: None (occurrence: None)
  Receive Date: 20110805
  Receipt Date: 20090420
  Transmission Date: 20111222
  Serious: No
  Sender: FDA-Public Use
  Company Number: 2009BI012089

PATIENT
  Sex: Female

DRUGS (2)
  1. AVONEX [Concomitant]
     Indication: MULTIPLE SCLEROSIS
     Route: 030
  2. TYSABRI [Suspect]
     Indication: MULTIPLE SCLEROSIS
     Route: 042
     Dates: start: 20070730, end: 20100512

REACTIONS (17)
  - WEIGHT DECREASED [None]
  - ROTATOR CUFF SYNDROME [None]
  - GAIT DISTURBANCE [None]
  - FALL [None]
  - FATIGUE [None]
  - T-LYMPHOCYTE COUNT DECREASED [None]
  - COGNITIVE DISORDER [None]
  - HEAD INJURY [None]
  - DYSKINESIA [None]
  - SKIN PAPILLOMA [None]
  - PANIC ATTACK [None]
  - PROGRESSIVE MULTIPLE SCLEROSIS [None]
  - NASOPHARYNGITIS [None]
  - TENDONITIS [None]
  - DRUG INEFFECTIVE [None]
  - FOOD CRAVING [None]
  - MULTIPLE SCLEROSIS RELAPSE [None]
